FAERS Safety Report 18985198 (Version 1)
Quarter: 2021Q1

REPORT INFORMATION
  Report Type: Spontaneous
  Country: FR (occurrence: FR)
  Receive Date: 20210309
  Receipt Date: 20210309
  Transmission Date: 20210420
  Serious: Yes (Other)
  Sender: FDA-Public Use
  Company Number: FR-TEVA-2021-FR-1888799

PATIENT
  Age: 81 Year
  Sex: Female

DRUGS (2)
  1. COTRIMOXAZOLE [Suspect]
     Active Substance: SULFAMETHOXAZOLE\TRIMETHOPRIM
     Indication: URINARY TRACT INFECTION
     Dosage: ONE MONTH AGO; 800 MG/160 MG
     Route: 065
     Dates: start: 2021
  2. COTRIMOXAZOLE [Suspect]
     Active Substance: SULFAMETHOXAZOLE\TRIMETHOPRIM
     Indication: VAGINAL INFECTION

REACTIONS (5)
  - Product solubility abnormal [Unknown]
  - Swollen tongue [Recovered/Resolved]
  - Oral mucosal exfoliation [Recovered/Resolved]
  - Adverse reaction [Recovered/Resolved]
  - Product use complaint [Unknown]

NARRATIVE: CASE EVENT DATE: 2021
